FAERS Safety Report 9230578 (Version 4)
Quarter: 2014Q2

REPORT INFORMATION
  Report Type: Spontaneous
  Country: US (occurrence: US)
  Receive Date: 20130415
  Receipt Date: 20140530
  Transmission Date: 20141212
  Serious: Yes (Hospitalization, Disabling)
  Sender: FDA-Public Use
  Company Number: US-BAYER-2013-043526

PATIENT
  Age: 27 Year
  Sex: Female
  Weight: 83.9 kg

DRUGS (2)
  1. MIRENA [Suspect]
     Indication: CONTRACEPTION
     Dosage: 20 MCG/24HR, CONT
     Route: 015
     Dates: start: 200805, end: 20130313
  2. FLAGYL [Concomitant]

REACTIONS (15)
  - Embedded device [None]
  - Device difficult to use [None]
  - Injury [None]
  - Pain [None]
  - Deformity [None]
  - Anxiety [None]
  - Anhedonia [None]
  - Internal injury [None]
  - Back pain [None]
  - Acne [None]
  - Mood altered [None]
  - Dyspareunia [None]
  - Weight increased [None]
  - Vaginal discharge [None]
  - Emotional distress [None]
